FAERS Safety Report 9345347 (Version 1)
Quarter: 2013Q2

REPORT INFORMATION
  Report Type: Spontaneous
  Country: US (occurrence: US)
  Receive Date: 20130613
  Receipt Date: 20130613
  Transmission Date: 20140414
  Serious: No
  Sender: FDA-Public Use
  Company Number: US-ASTRAZENECA-2009UW06177

PATIENT
  Age: 53 Year
  Sex: Female

DRUGS (5)
  1. NEXIUM [Suspect]
     Route: 048
     Dates: start: 20080123
  2. NEXIUM [Suspect]
     Dosage: GENERIC
     Route: 065
  3. TOPROL XL [Suspect]
     Route: 048
     Dates: start: 20080123
  4. TOPROL XL [Suspect]
     Dosage: GENERIC
     Route: 065
  5. CRESTOR [Suspect]
     Route: 048
     Dates: start: 20080123

REACTIONS (10)
  - Malaise [Unknown]
  - Hypertension [Unknown]
  - Palpitations [Unknown]
  - Cardiac disorder [Recovering/Resolving]
  - Diabetes mellitus [Recovering/Resolving]
  - Drug withdrawal headache [Unknown]
  - Vomiting [Unknown]
  - Drug dose omission [Unknown]
  - Intentional drug misuse [Unknown]
  - Drug ineffective [Unknown]
